FAERS Safety Report 7177622-0 (Version None)
Quarter: 2010Q4

REPORT INFORMATION
  Report Type: 
  Country: None (occurrence: None)
  Receive Date: 20101207
  Receipt Date: 20101130
  Transmission Date: 20110411
  Serious: Yes (Other)
  Sender: FDA-Public Use
  Company Number: 20109113

PATIENT
  Sex: Male

DRUGS (1)
  1. LIORESAL [Suspect]
     Indication: MUSCLE SPASTICITY
     Dosage: (MCG, DAILY, INTRATHECAL
     Route: 037

REACTIONS (8)
  - BURNING SENSATION [None]
  - IMPLANT SITE REACTION [None]
  - INCORRECT DOSE ADMINISTERED [None]
  - JOINT LOCK [None]
  - MUSCLE SPASTICITY [None]
  - PAIN IN EXTREMITY [None]
  - THERAPEUTIC PRODUCT INEFFECTIVE [None]
  - UNEVALUABLE EVENT [None]
